FAERS Safety Report 7040660-2 (Version None)
Quarter: 2010Q4

REPORT INFORMATION
  Report Type: 
  Country: None (occurrence: None)
  Receive Date: 20101013
  Receipt Date: 20101008
  Transmission Date: 20110411
  Serious: Yes (Hospitalization)
  Sender: FDA-Public Use
  Company Number: DE-AMGEN-QUU444485

PATIENT
  Age: 70 Year
  Sex: Female

DRUGS (4)
  1. ENBREL [Suspect]
     Indication: PSORIATIC ARTHROPATHY
     Route: 058
     Dates: start: 20100614
  2. NOVALGIN [Concomitant]
     Dosage: UNKNOWN
  3. IBUPROFEN [Concomitant]
     Dosage: UNKNOWN DOSE AS NEEDED
  4. MORPHINE [Concomitant]
     Dosage: UNKNOWN

REACTIONS (4)
  - ARRHYTHMIA [None]
  - BREAST PAIN [None]
  - DYSPNOEA [None]
  - SYNCOPE [None]
